FAERS Safety Report 9134332 (Version 2)
Quarter: 2013Q2

REPORT INFORMATION
  Report Type: Spontaneous
  Country: DE (occurrence: DE)
  Receive Date: 20130304
  Receipt Date: 20130603
  Transmission Date: 20140414
  Serious: Yes (Hospitalization)
  Sender: FDA-Public Use
  Company Number: DE-AMGEN-DEUSP2013014705

PATIENT
  Age: 58 Year
  Sex: Female
  Weight: 90 kg

DRUGS (2)
  1. ENBREL [Suspect]
     Indication: RHEUMATOID ARTHRITIS
     Dosage: 50 MG, WEEKLY
     Route: 058
     Dates: start: 201202, end: 201203
  2. MTX [Concomitant]
     Dosage: UNK

REACTIONS (4)
  - Gait disturbance [Recovering/Resolving]
  - Abasia [Recovered/Resolved]
  - Arthropathy [Unknown]
  - Limb discomfort [Recovering/Resolving]
